FAERS Safety Report 24678440 (Version 1)
Quarter: 2024Q4

REPORT INFORMATION
  Report Type: Report from Study
  Country: IN (occurrence: IN)
  Receive Date: 20241129
  Receipt Date: 20241129
  Transmission Date: 20250114
  Serious: Yes (Hospitalization, Other)
  Sender: CIPLA
  Company Number: IN-CIPLA LTD.-2024IN13687

PATIENT

DRUGS (5)
  1. METOPROLOL SUCCINATE [Suspect]
     Active Substance: METOPROLOL SUCCINATE
     Indication: Product used for unknown indication
     Dosage: DOSE USED-1, FREQUENCY-1, STRENGTH: 50(UNSPECIFIED UNITS)
     Route: 048
     Dates: start: 2018
  2. METFORMIN HYDROCHLORIDE\VILDAGLIPTIN [Suspect]
     Active Substance: METFORMIN HYDROCHLORIDE\VILDAGLIPTIN
     Indication: Product used for unknown indication
     Dosage: DOSE USED-1, FREQUENCY-1, STRENGTH: 50MG (UNSPECIFIED UNITS)
     Route: 048
     Dates: start: 2018
  3. ASPIRIN\CLOPIDOGREL BISULFATE [Concomitant]
     Active Substance: ASPIRIN\CLOPIDOGREL BISULFATE
     Indication: Product used for unknown indication
     Dosage: 75/75 (UNITS UNSPECIFIED)
     Route: 065
  4. AVAS [Concomitant]
     Indication: Product used for unknown indication
     Dosage: 40 (UNITS UNSPECIFIED)
     Route: 065
  5. EMBETA XR [Concomitant]
     Indication: Product used for unknown indication
     Dosage: 100 (UNITS UNSPECIFIED)
     Route: 065

REACTIONS (3)
  - Paralysis [Not Recovered/Not Resolved]
  - Cardiovascular disorder [Not Recovered/Not Resolved]
  - Malaise [Not Recovered/Not Resolved]

NARRATIVE: CASE EVENT DATE: 20210101
